FAERS Safety Report 25146915 (Version 1)
Quarter: 2025Q2

REPORT INFORMATION
  Report Type: Spontaneous
  Country: US (occurrence: US)
  Receive Date: 20250401
  Receipt Date: 20250401
  Transmission Date: 20250716
  Serious: No
  Sender: ABBVIE
  Company Number: US-ABBVIE-6194019

PATIENT

DRUGS (1)
  1. LUMIGAN [Suspect]
     Active Substance: BIMATOPROST
     Indication: Product used for unknown indication
     Route: 047

REACTIONS (7)
  - Dizziness [Unknown]
  - Foreign body sensation in eyes [Unknown]
  - Photophobia [Unknown]
  - Hypertension [Unknown]
  - Dry eye [Unknown]
  - Eye irritation [Unknown]
  - Eyelids pruritus [Unknown]
